FAERS Safety Report 5992967-5 (Version None)
Quarter: 2008Q4

REPORT INFORMATION
  Report Type: 
  Country: None (occurrence: None)
  Receive Date: 20081210
  Receipt Date: 20081210
  Transmission Date: 20090506
  Serious: No
  Sender: FDA-Public Use
  Company Number: None

PATIENT
  Age: 52 Year
  Sex: Female
  Weight: 72.12 kg

DRUGS (1)
  1. MOMETASONE FUROATE [Suspect]
     Indication: ASTHMA
     Dosage: 440 MCG EVERY DAY INHALE
     Route: 055
     Dates: start: 20080117, end: 20080614

REACTIONS (1)
  - WEIGHT INCREASED [None]
